FAERS Safety Report 9891726 (Version 1)
Quarter: 2014Q1

REPORT INFORMATION
  Report Type: Report from Study
  Country: BR (occurrence: BR)
  Receive Date: 20140212
  Receipt Date: 20140212
  Transmission Date: 20141002
  Serious: Yes (Other)
  Sender: FDA-Public Use
  Company Number: PHHY2014BR015626

PATIENT
  Sex: Female
  Weight: 70 kg

DRUGS (3)
  1. DIOVAN TRIPLE [Suspect]
     Indication: BLOOD PRESSURE INCREASED
     Dosage: 2 DF (160 MG VALS, 5 MG AMLO, 12.5 MG HYDR), DAILY
     Route: 048
  2. BONALEN [Concomitant]
     Indication: OSTEOPOROSIS
     Dosage: UNK UKN, UNK
  3. METFORMIN [Concomitant]
     Indication: DIABETES MELLITUS
     Dosage: UNK UKN, UNK

REACTIONS (4)
  - Discomfort [Not Recovered/Not Resolved]
  - Hypersensitivity [Not Recovered/Not Resolved]
  - Local swelling [Not Recovered/Not Resolved]
  - Swelling face [Not Recovered/Not Resolved]
